FAERS Safety Report 6748484-8 (Version None)
Quarter: 2010Q2

REPORT INFORMATION
  Report Type: 
  Country: None (occurrence: None)
  Receive Date: 20100527
  Receipt Date: 20100527
  Transmission Date: 20101027
  Serious: Yes (Life-Threatening, Hospitalization, Other)
  Sender: FDA-Public Use
  Company Number: None

PATIENT
  Age: 39 Year
  Sex: Male
  Weight: 79.3795 kg

DRUGS (1)
  1. ROCEPHIN [Suspect]
     Indication: INFECTION
     Dates: start: 20090909, end: 20090911

REACTIONS (1)
  - STEVENS-JOHNSON SYNDROME [None]
